FAERS Safety Report 7482856-1 (Version None)
Quarter: 2011Q2

REPORT INFORMATION
  Report Type: 
  Country: None (occurrence: None)
  Receive Date: 20110516
  Receipt Date: 20110511
  Transmission Date: 20111010
  Serious: Yes (Hospitalization)
  Sender: FDA-Public Use
  Company Number: IE-PFIZER INC-2011100931

PATIENT

DRUGS (1)
  1. METHYLPEDNISOLONE SODIUM SUCCINATE [Suspect]

REACTIONS (1)
  - DRUG HYPERSENSITIVITY [None]
